FAERS Safety Report 9207382 (Version 1)
Quarter: 2013Q2

REPORT INFORMATION
  Report Type: Spontaneous
  Country: US (occurrence: None)
  Receive Date: 20130402
  Receipt Date: 20130402
  Transmission Date: 20140414
  Serious: Yes (Hospitalization)
  Sender: FDA-Public Use
  Company Number: None

PATIENT
  Age: 44 Year
  Sex: Female
  Weight: 54 kg

DRUGS (2)
  1. MULTIHANCE [Suspect]
     Indication: NUCLEAR MAGNETIC RESONANCE IMAGING
     Route: 042
     Dates: start: 20130329, end: 20130329
  2. MULTIHANCE [Suspect]
     Indication: RENAL CYST
     Route: 042
     Dates: start: 20130329, end: 20130329

REACTIONS (10)
  - Feeling hot [None]
  - Flushing [None]
  - Unresponsive to stimuli [None]
  - Vomiting [None]
  - Wheezing [None]
  - Hypotension [None]
  - Tachycardia [None]
  - Hyperhidrosis [None]
  - Blood pressure decreased [None]
  - Respiratory rate increased [None]
